FAERS Safety Report 13922938 (Version 5)
Quarter: 2018Q2

REPORT INFORMATION
  Report Type: Report from Study
  Country: None (occurrence: FR)
  Receive Date: 20170830
  Receipt Date: 20180625
  Transmission Date: 20180711
  Serious: Yes (Other)
  Sender: FDA-Public Use
  Company Number: FR-ABBVIE-17K-056-2086757-00

PATIENT
  Age: 71 Year
  Sex: Male

DRUGS (3)
  1. DUODOPA [Suspect]
     Active Substance: CARBIDOPA\LEVODOPA
     Indication: PARKINSON^S DISEASE
     Dosage: 07:30-12:30: 5.5 ML; 12:30-18:30: 6.5 ML; 18:30-19:30: 3.3 ML
     Route: 050
     Dates: start: 201705
  2. LEPONEX [Concomitant]
     Active Substance: CLOZAPINE
     Indication: PRODUCT USED FOR UNKNOWN INDICATION
     Dosage: 1/4 TABLET IN MORNING AND 1 TABLET IN EVENING
     Route: 048
     Dates: end: 2017
  3. LEPONEX [Concomitant]
     Active Substance: CLOZAPINE
     Dosage: DOSE INCREASED
     Dates: start: 2017

REACTIONS (9)
  - Freezing phenomenon [Not Recovered/Not Resolved]
  - Poor quality sleep [Not Recovered/Not Resolved]
  - Persecutory delusion [Not Recovered/Not Resolved]
  - Hallucination [Recovered/Resolved]
  - Pain [Not Recovered/Not Resolved]
  - Persecutory delusion [Recovered/Resolved]
  - Weight decreased [Not Recovered/Not Resolved]
  - Freezing phenomenon [Not Recovered/Not Resolved]
  - Persecutory delusion [Recovered/Resolved]

NARRATIVE: CASE EVENT DATE: 20170828
